FAERS Safety Report 4447951-X (Version None)
Quarter: 2004Q3

REPORT INFORMATION
  Report Type: 
  Country: None (occurrence: None)
  Receive Date: 20040818
  Receipt Date: 20031104
  Transmission Date: 20050211
  Serious: No
  Sender: FDA-Public Use
  Company Number: 2003UW14500

PATIENT

DRUGS (1)
  1. CEFOTAN [Suspect]

REACTIONS (1)
  - HAEMOLYTIC ANAEMIA [None]
